FAERS Safety Report 19210148 (Version 2)
Quarter: 2021Q2

REPORT INFORMATION
  Report Type: Report from Study
  Country: US (occurrence: US)
  Receive Date: 20210504
  Receipt Date: 20210611
  Transmission Date: 20210717
  Serious: Yes (Death)
  Sender: FDA-Public Use
  Company Number: US-TAIHO ONCOLOGY  INC-EU-2021-01301

PATIENT
  Age: 56 Year
  Sex: Female

DRUGS (4)
  1. LONSURF [Suspect]
     Active Substance: TIPIRACIL HYDROCHLORIDE\TRIFLURIDINE
     Indication: RECTOSIGMOID CANCER
     Dosage: CYCLE?1
     Route: 048
     Dates: start: 20210212, end: 20210405
  2. FERROUS SULFATE. [Concomitant]
     Active Substance: FERROUS SULFATE
  3. HYDROCOCDONE?ACETAMINOPHEN [Concomitant]
  4. FENTANYL TRANSDERMAL SYSTEM [Concomitant]
     Active Substance: FENTANYL

REACTIONS (1)
  - Disease progression [Fatal]

NARRATIVE: CASE EVENT DATE: 20210405
